APPROVED DRUG PRODUCT: AMLODIPINE BESYLATE, VALSARTAN AND HYDROCHLOROTHIAZIDE
Active Ingredient: AMLODIPINE BESYLATE; HYDROCHLOROTHIAZIDE; VALSARTAN
Strength: EQ 5MG BASE;12.5MG;160MG
Dosage Form/Route: TABLET;ORAL
Application: A207299 | Product #001 | TE Code: AB
Applicant: MACLEODS PHARMACEUTICALS LTD
Approved: Jan 7, 2025 | RLD: No | RS: No | Type: RX